FAERS Safety Report 19109707 (Version 1)
Quarter: 2021Q2

REPORT INFORMATION
  Report Type: Spontaneous
  Country: US (occurrence: US)
  Receive Date: 20210409
  Receipt Date: 20210409
  Transmission Date: 20210717
  Serious: No
  Sender: FDA-Public Use
  Company Number: US-DRREDDYS-USA/USA/21/0133685

PATIENT
  Age: 17 Year
  Sex: Female

DRUGS (1)
  1. ZENATANE [Suspect]
     Active Substance: ISOTRETINOIN
     Indication: PRODUCT USED FOR UNKNOWN INDICATION
     Dosage: RMA ISSUE DATE:11/13/2020 6:09:13 PM,12/16/2020 3:26:59 PM,1/18/2021 6:00:44 PM AND 2/19/2021 12:39:
     Route: 048

REACTIONS (2)
  - Alopecia [Unknown]
  - Menstruation irregular [Unknown]
